FAERS Safety Report 24055308 (Version 1)
Quarter: 2024Q3

REPORT INFORMATION
  Report Type: Spontaneous
  Country: US (occurrence: US)
  Receive Date: 20240705
  Receipt Date: 20240705
  Transmission Date: 20241017
  Serious: Yes (Other)
  Sender: AMGEN
  Company Number: US-AMGEN-USASP2024127854

PATIENT
  Sex: Male

DRUGS (27)
  1. IMLYGIC [Suspect]
     Active Substance: TALIMOGENE LAHERPAREPVEC
     Indication: Metastatic malignant melanoma
     Dosage: UNK
     Route: 065
  2. BRAFTOVI [Concomitant]
     Active Substance: ENCORAFENIB
     Indication: Malignant melanoma
     Dosage: 450 MILLIGRAM, QD, DAILY
     Route: 065
     Dates: start: 202008
  3. BRAFTOVI [Concomitant]
     Active Substance: ENCORAFENIB
     Dosage: 450 MILLIGRAM, QD, DAILY
     Route: 065
     Dates: start: 202102
  4. Binimetinib;Encorafenib [Concomitant]
     Indication: Malignant melanoma
     Dosage: UNK
     Route: 065
     Dates: start: 202008
  5. HYDROCHLOROTHIAZIDE\RAMIPRIL [Concomitant]
     Active Substance: HYDROCHLOROTHIAZIDE\RAMIPRIL
     Indication: Type 1 diabetes mellitus
     Dosage: UNK, TID, TEST THREE TIMES DAILY
  6. HUMALOG [Concomitant]
     Active Substance: INSULIN LISPRO
     Indication: Type 1 diabetes mellitus
     Dosage: UNK, USE 7 UHITS BEFORE EACH MEAL
  7. HUMALOG [Concomitant]
     Active Substance: INSULIN LISPRO
     Dosage: UNK, USE 7 UHITS BEFORE EACH MEAL, CONCENTRATED 200 UNIT/ML PEN, SC SOLUTION PEN-INJECTOR
     Route: 058
  8. LORAZEPAM [Concomitant]
     Active Substance: LORAZEPAM
     Indication: Type 1 diabetes mellitus
     Dosage: 1 MILLIGRAM, TAKE 1 TAB BY MOUTH AS DIRECTED. TAKE 30 MINUTES
     Route: 048
  9. JANUMET [Concomitant]
     Active Substance: METFORMIN HYDROCHLORIDE\SITAGLIPTIN PHOSPHATE
     Indication: Pain
     Dosage: UNK, TAKE 1 TAB BY MOUTH TWO TIMES PER DAY WITH MEALS.
     Route: 048
  10. NORCO [Concomitant]
     Active Substance: ACETAMINOPHEN\HYDROCODONE BITARTRATE
     Indication: Pain
     Dosage: TAKE 1 TAB BY MOUTH EVERY 6 HOURS AS NEEDED. DAILY AMOUNT: 4 TABS 10-325 MG PO TAB.
     Route: 048
  11. LOPID [Concomitant]
     Active Substance: GEMFIBROZIL
     Indication: Pain
     Dosage: 600 MILLIGRAM, TAKE 1 TABLET BY UNOUTH TWO TIMES PET DAY BEFORE MEALS
     Route: 048
  12. CELEBREX [Concomitant]
     Active Substance: CELECOXIB
     Indication: Pain
     Dosage: 200 MILLIGRAM, 1 CAP TWICE DAILY AS NEEDED. TAKE WITH FOOD
     Route: 048
  13. NALOXONE HCL [Concomitant]
     Active Substance: NALOXONE HYDROCHLORIDE
     Indication: Drug use disorder
     Dosage: 4 MG/O. I M L NA 1 SPRAY AS NEEDED
  14. DILAUDID [Concomitant]
     Active Substance: HYDROMORPHONE HYDROCHLORIDE
     Indication: Pain
     Dosage: 2 MILLIGRAM,. T.AKE 1 TAB BY MOUTH EVERY 6 HOURS:AS NEEDED. MAX, DAILY AMOUNT: 8.MG
     Route: 048
  15. NOVOLOG [Concomitant]
     Active Substance: INSULIN ASPART
     Indication: Drug use disorder
     Dosage: 100 UNIT/ML INJECT SUBCUTENEOUT AS DIRECTEC INJECT 3 UNIT WITH MEAL
     Route: 058
  16. A-VITEL [Concomitant]
     Indication: Product used for unknown indication
     Dosage: UNK, AKE 1 TAB BY MOUTH TWO TIMES PER DAY
     Route: 048
  17. PRAMIPEXOLE [Concomitant]
     Active Substance: PRAMIPEXOLE\PRAMIPEXOLE DIHYDROCHLORIDE
     Indication: Product used for unknown indication
     Dosage: 0.25 MILLIGRAM, TAKE 5 TABS BY MOUTHEVERYNIGHT AT BEDTIME
     Route: 048
  18. LIDOCAINE [Concomitant]
     Active Substance: LIDOCAINE
     Indication: Product used for unknown indication
     Dosage: 5 PERCENT, PLACE 1 APPLICATION TOPICALLY ONCE DAILY AS NEEDED APPLY TO BOTH FEET
  19. NEURONTIN [Concomitant]
     Active Substance: GABAPENTIN
     Indication: Product used for unknown indication
     Dosage: UNK, TAKE 4 CAP BY MOUTH EVERY NIGHTAT BEDTIME
     Route: 048
  20. LEVETIRACETAM [Concomitant]
     Active Substance: LEVETIRACETAM
     Indication: Product used for unknown indication
     Dosage: 1000 MILLIGRAM, TAKE 1 TAB BY MOUTH TWO TIMES PER DAY
     Route: 048
  21. GLUCOTROL [Concomitant]
     Active Substance: GLIPIZIDE
     Indication: Product used for unknown indication
     Dosage: 10 MILLIGRAM, TAKE 1 TAB BY MOUTH.ONCE PER DAY
     Route: 048
  22. LANTUS [Concomitant]
     Active Substance: INSULIN GLARGINE
     Indication: Product used for unknown indication
     Dosage: 100 100 UNITIML SC SOLUTION PEN
     Route: 058
  23. FERROUS SULFATE [Concomitant]
     Active Substance: FERROUS SULFATE
     Indication: Product used for unknown indication
     Dosage: 325 MILLIGRAM, TAKE, I TAB BY MOUTH ONCE PER DAY
     Route: 048
  24. SENOKOT-S [Concomitant]
     Active Substance: DOCUSATE SODIUM\SENNOSIDES
     Indication: Constipation
     Dosage: 8-6750 MG, TAKE 1 TALB BY MOUTH ONCE:DAILY AS NEED,
     Route: 048
  25. OMEPRAZOLE [Concomitant]
     Active Substance: OMEPRAZOLE
     Indication: Product used for unknown indication
     Dosage: 20 MILLIGRAM, TAKE I CAP BY MOU.TH ONCE PER DAY.,
     Route: 048
  26. VITAMIN D3 [Concomitant]
     Active Substance: CHOLECALCIFEROL
     Indication: Product used for unknown indication
     Dosage: 125 MICROGRAM, TAKE 1 CAP BY MOUTH ONCE PER DAY
  27. COZAAR [Concomitant]
     Active Substance: LOSARTAN POTASSIUM
     Indication: Product used for unknown indication
     Dosage: 100 MILLIGRAM, TAKE I TAB BY MOUTH ONCEPER DAY
     Route: 048

REACTIONS (11)
  - Metastatic malignant melanoma [Unknown]
  - Colitis ulcerative [Unknown]
  - Restless legs syndrome [Unknown]
  - Iron deficiency anaemia [Recovering/Resolving]
  - Hypoacusis [Unknown]
  - Monocyte count increased [Unknown]
  - Blood glucose increased [Unknown]
  - Blood urea increased [Unknown]
  - Oedema peripheral [Unknown]
  - Arthralgia [Recovering/Resolving]
  - Rash [Unknown]

NARRATIVE: CASE EVENT DATE: 20211101
